FAERS Safety Report 9118215 (Version 4)
Quarter: 2013Q4

REPORT INFORMATION
  Report Type: Spontaneous
  Country: US (occurrence: US)
  Receive Date: 20130128
  Receipt Date: 20131115
  Transmission Date: 20140711
  Serious: No
  Sender: FDA-Public Use
  Company Number: US-PFIZER INC-2013032221

PATIENT
  Age: 74 Year
  Sex: Male
  Weight: 83.9 kg

DRUGS (5)
  1. SUTENT [Suspect]
     Indication: THYROID CANCER METASTATIC
     Dosage: 50 MG DAILY, CYCLIC (4 WEEKS ON AND 2 OFF)
     Route: 048
     Dates: start: 201112
  2. HYTRIN [Concomitant]
     Indication: PROSTATIC DISORDER
     Dosage: 2 MG, DAILY
  3. LASIX [Concomitant]
     Dosage: UNK
  4. LEVOTHYROXINE [Concomitant]
     Dosage: UNK
  5. LISINOPRIL [Concomitant]
     Dosage: UNK

REACTIONS (4)
  - Hyperaesthesia [Unknown]
  - Penile size reduced [Unknown]
  - Dysgeusia [Unknown]
  - Off label use [Unknown]
